FAERS Safety Report 4910410-1 (Version None)
Quarter: 2006Q1

REPORT INFORMATION
  Report Type: 
  Country: None (occurrence: None)
  Receive Date: 20060209
  Receipt Date: 20060201
  Transmission Date: 20060701
  Serious: Yes (Life-Threatening, Hospitalization, Other)
  Sender: FDA-Public Use
  Company Number: 200513122BWH

PATIENT
  Age: 63 Year
  Sex: Male
  Weight: 72 kg

DRUGS (19)
  1. SORAFENIB [Suspect]
     Indication: METASTATIC RENAL CELL CARCINOMA
     Dosage: SEE IMAGE, ORAL
     Route: 048
     Dates: start: 20051127, end: 20051207
  2. SORAFENIB [Suspect]
     Indication: METASTATIC RENAL CELL CARCINOMA
     Dosage: SEE IMAGE, ORAL
     Route: 048
     Dates: start: 20051209, end: 20051214
  3. SORAFENIB [Suspect]
     Indication: METASTATIC RENAL CELL CARCINOMA
     Dosage: SEE IMAGE, ORAL
     Route: 048
     Dates: start: 20051216, end: 20051226
  4. SORAFENIB [Suspect]
     Indication: METASTATIC RENAL CELL CARCINOMA
     Dosage: SEE IMAGE, ORAL
     Route: 048
     Dates: start: 20060123, end: 20060128
  5. SORAFENIB [Suspect]
     Indication: METASTATIC RENAL CELL CARCINOMA
     Dosage: SEE IMAGE, ORAL
     Route: 048
     Dates: start: 20051123
  6. ATENOLOL [Concomitant]
  7. HUMULIN R [Concomitant]
  8. LANTUS [Concomitant]
  9. OXYCONTIN [Concomitant]
  10. PERCOCET [Concomitant]
  11. TOPAMAX [Concomitant]
  12. TRAZODONE [Concomitant]
  13. HYDRALAZINE HYDROCHLORIDE [Concomitant]
  14. HYDROCHLOROTHIAZIDE [Concomitant]
  15. NOVOLOG [Concomitant]
  16. LISINOPRIL [Concomitant]
  17. NORVASC [Concomitant]
  18. REGLAN [Concomitant]
  19. TOPROL-XL [Concomitant]

REACTIONS (18)
  - ABDOMINAL DISCOMFORT [None]
  - ATRIOVENTRICULAR BLOCK [None]
  - BLOOD PRESSURE SYSTOLIC INCREASED [None]
  - BLOOD UREA INCREASED [None]
  - BRADYCARDIA [None]
  - CARDIAC MURMUR [None]
  - DUODENAL ULCER [None]
  - FAECES DISCOLOURED [None]
  - GASTROINTESTINAL HAEMORRHAGE [None]
  - HAEMORRHAGE [None]
  - HYPOTENSION [None]
  - ILEUS [None]
  - MYOCARDIAL INFARCTION [None]
  - MYOCARDIAL ISCHAEMIA [None]
  - NAUSEA [None]
  - POST PROCEDURAL COMPLICATION [None]
  - SYNCOPE [None]
  - TROPONIN INCREASED [None]
